FAERS Safety Report 9031045 (Version 2)
Quarter: 2013Q1

REPORT INFORMATION
  Report Type: Spontaneous
  Country: US (occurrence: US)
  Receive Date: 20130123
  Receipt Date: 20130215
  Transmission Date: 20140127
  Serious: Yes (Disabling, Other)
  Sender: FDA-Public Use
  Company Number: US-PFIZER INC-2013028425

PATIENT
  Age: 49 Year
  Sex: Male
  Weight: 106 kg

DRUGS (5)
  1. NEURONTIN [Suspect]
     Indication: ARTHROPATHY
     Dosage: 300 MG, 3X/DAY
     Dates: start: 2012
  2. VIAGRA [Suspect]
     Indication: ERECTILE DYSFUNCTION
     Dosage: 25 MG, DAILY
     Route: 048
     Dates: start: 2012
  3. VIAGRA [Suspect]
     Dosage: 100 MG, AS NEEDED
     Route: 048
  4. LIPITOR [Suspect]
     Dosage: UNK
  5. ASPIRIN [Concomitant]
     Dosage: 81 MG, UNK

REACTIONS (8)
  - Cardiac sarcoidosis [Unknown]
  - Hypertension [Unknown]
  - Blood cholesterol increased [Unknown]
  - Drug ineffective [Unknown]
  - Lung disorder [Unknown]
  - Lip disorder [Unknown]
  - Nasal discomfort [Unknown]
  - Gastric disorder [Unknown]
